FAERS Safety Report 25961149 (Version 1)
Quarter: 2025Q4

REPORT INFORMATION
  Report Type: Spontaneous
  Country: CL (occurrence: CL)
  Receive Date: 20251027
  Receipt Date: 20251027
  Transmission Date: 20260117
  Serious: Yes (Other)
  Sender: EMD SERONO INC
  Company Number: CL-Merck Healthcare KGaA-2025053114

PATIENT
  Age: 42 Year
  Sex: Female

DRUGS (1)
  1. LEVOTHYROXINE SODIUM [Suspect]
     Active Substance: LEVOTHYROXINE SODIUM
     Indication: Product used for unknown indication
     Dosage: MANUFACTURING DATE: FEB-2025 EXPIRATION: JAN-2027

REACTIONS (6)
  - Thyroid hormones increased [Unknown]
  - Inguinal hernia [Unknown]
  - Pain [Unknown]
  - Weight increased [Unknown]
  - Fatigue [Unknown]
  - Hypersomnia [Unknown]
